FAERS Safety Report 5753125-2 (Version None)
Quarter: 2008Q2

REPORT INFORMATION
  Report Type: 
  Country: None (occurrence: None)
  Receive Date: 20080530
  Receipt Date: 20080528
  Transmission Date: 20081010
  Serious: Yes (Hospitalization)
  Sender: FDA-Public Use
  Company Number: US-TEVA-171032USA

PATIENT
  Age: 49 Year
  Sex: Female

DRUGS (12)
  1. ALBUTEROL [Suspect]
     Indication: ASTHMA
     Dosage: FREQUENT USE
     Route: 055
  2. FLUTICASONE PROPIONATE W/SALMETEROL [Suspect]
  3. LEVOSALBUTAMOL [Concomitant]
  4. MONTELUKAST SODIUM [Concomitant]
  5. FEXOFENADINE [Concomitant]
  6. FLUTICASONE [Concomitant]
     Route: 045
  7. AZELASTINE HCL [Concomitant]
  8. ALBUTEROL [Concomitant]
  9. IPRATROPIUM BROMIDE [Concomitant]
  10. PANTOPRAZOLE [Concomitant]
  11. HYDROCHLOROTHIAZIDE [Concomitant]
  12. WARFARIN SODIUM [Concomitant]

REACTIONS (1)
  - ASTHMA [None]
